FAERS Safety Report 15855546 (Version 1)
Quarter: 2019Q1

REPORT INFORMATION
  Report Type: Spontaneous
  Country: FR (occurrence: FR)
  Receive Date: 20190122
  Receipt Date: 20190122
  Transmission Date: 20190417
  Serious: Yes (Other)
  Sender: FDA-Public Use
  Company Number: FR-ELI_LILLY_AND_COMPANY-FR201901006540

PATIENT
  Age: 62 Year
  Sex: Female
  Weight: 64 kg

DRUGS (14)
  1. OLANZAPINE. [Suspect]
     Active Substance: OLANZAPINE
     Indication: PRODUCT USED FOR UNKNOWN INDICATION
     Dosage: 10 MG, SINGLE
     Route: 048
     Dates: start: 20181123, end: 20181123
  2. TERCIAN [CYAMEMAZINE TARTRATE] [Suspect]
     Active Substance: CYAMEMAZINE
     Indication: WRONG PATIENT RECEIVED PRODUCT
     Dosage: 100 MG, SINGLE
     Route: 048
     Dates: start: 20181123, end: 20181123
  3. OROKEN [Suspect]
     Active Substance: CEFIXIME
     Indication: WRONG PATIENT RECEIVED PRODUCT
     Dosage: 200 MG, SINGLE
     Route: 048
     Dates: start: 20181123, end: 20181123
  4. TERCIAN [CYAMEMAZINE] [Concomitant]
     Active Substance: CYAMEMAZINE
     Indication: PRODUCT USED FOR UNKNOWN INDICATION
     Dosage: 1 DF, UNKNOWN
     Route: 030
  5. NEULEPTIL [PERICIAZINE] [Suspect]
     Active Substance: PERICIAZINE
     Indication: WRONG PATIENT RECEIVED PRODUCT
     Dosage: 50 MG, SINGLE
     Route: 048
     Dates: start: 20181123, end: 20181123
  6. LEPTICUR [Suspect]
     Active Substance: TROPATEPINE HYDROCHLORIDE
     Indication: WRONG PATIENT RECEIVED PRODUCT
     Dosage: 10 MG, SINGLE
     Route: 048
     Dates: start: 20181123, end: 20181123
  7. MOVICOL [MACROGOL 3350;POTASSIUM CHLORIDE;SOD [Concomitant]
     Indication: PRODUCT USED FOR UNKNOWN INDICATION
     Dosage: 2 DF, DAILY
     Route: 048
  8. FORLAX [Suspect]
     Active Substance: POLYETHYLENE GLYCOL 4000
     Indication: WRONG PATIENT RECEIVED PRODUCT
     Dosage: 10 MG, UNKNOWN
     Route: 048
     Dates: start: 20181123, end: 20181123
  9. PANTOPRAZOLE SODIUM. [Suspect]
     Active Substance: PANTOPRAZOLE SODIUM
     Indication: WRONG PATIENT RECEIVED PRODUCT
     Dosage: 20 MG, SINGLE
     Route: 048
     Dates: start: 20181123, end: 20181123
  10. DEPAKOTE [Concomitant]
     Active Substance: DIVALPROEX SODIUM
     Indication: PRODUCT USED FOR UNKNOWN INDICATION
     Dosage: 500 MG, DAILY
     Route: 048
  11. DEPAKOTE [Concomitant]
     Active Substance: DIVALPROEX SODIUM
     Dosage: 250 MG, DAILY
     Route: 048
  12. LEPTICUR [Concomitant]
     Active Substance: TROPATEPINE HYDROCHLORIDE
     Dosage: 10 MG, DAILY
     Route: 048
  13. DIFFU K [Concomitant]
     Active Substance: POTASSIUM CHLORIDE
     Indication: PRODUCT USED FOR UNKNOWN INDICATION
     Dosage: 1800 MG, DAILY
     Route: 048
  14. RISPERIDONE. [Concomitant]
     Active Substance: RISPERIDONE
     Indication: PRODUCT USED FOR UNKNOWN INDICATION
     Dosage: 4 MG, DAILY
     Route: 048

REACTIONS (2)
  - Hypotension [Recovered/Resolved with Sequelae]
  - Wrong patient received product [Recovered/Resolved]

NARRATIVE: CASE EVENT DATE: 20181123
